FAERS Safety Report 11809308 (Version 1)
Quarter: 2015Q4

REPORT INFORMATION
  Report Type: Other
  Country: IT (occurrence: IT)
  Receive Date: 20151207
  Receipt Date: 20151207
  Transmission Date: 20160305
  Serious: Yes (Other)
  Sender: FDA-Public Use
  Company Number: IT-MYLANLABS-2015M1042545

PATIENT

DRUGS (3)
  1. BUSCOFEN /00109201/ [Suspect]
     Active Substance: IBUPROFEN SODIUM
     Indication: ABDOMINAL PAIN
     Dosage: UNK
     Dates: start: 20150204
  2. EFFERALGAN [Suspect]
     Active Substance: ACETAMINOPHEN
     Indication: ABDOMINAL PAIN
     Dosage: UNK
     Dates: start: 20150204
  3. CIPROFLOXACIN HYDROCHLORIDE. [Suspect]
     Active Substance: CIPROFLOXACIN HYDROCHLORIDE
     Indication: ABDOMINAL PAIN
     Dosage: UNK
     Dates: start: 20150204

REACTIONS (3)
  - Bradycardia [Recovering/Resolving]
  - Presyncope [Recovering/Resolving]
  - Vertigo [Recovering/Resolving]

NARRATIVE: CASE EVENT DATE: 20150204
